FAERS Safety Report 14793997 (Version 2)
Quarter: 2018Q2

REPORT INFORMATION
  Report Type: Spontaneous
  Country: US (occurrence: US)
  Receive Date: 20180423
  Receipt Date: 20180516
  Transmission Date: 20180711
  Serious: Yes (Hospitalization)
  Sender: FDA-Public Use
  Company Number: US-VERTEX PHARMACEUTICALS-2018-002549

PATIENT
  Age: 18 Year
  Sex: Female

DRUGS (2)
  1. ORKAMBI [Suspect]
     Active Substance: IVACAFTOR\LUMACAFTOR
     Indication: CYSTIC FIBROSIS
     Dosage: 2TABS (200/125 MG EACH), BID
     Route: 048
     Dates: start: 20170623
  2. OSELTAMIVIR [Concomitant]
     Active Substance: OSELTAMIVIR
     Dosage: UNK
     Dates: start: 20180227

REACTIONS (1)
  - Blood glucose decreased [Not Recovered/Not Resolved]

NARRATIVE: CASE EVENT DATE: 201804
